FAERS Safety Report 18678662 (Version 1)
Quarter: 2020Q4

REPORT INFORMATION
  Report Type: Report from Study
  Country: US (occurrence: US)
  Receive Date: 20201229
  Receipt Date: 20201229
  Transmission Date: 20210114
  Serious: No
  Sender: FDA-Public Use
  Company Number: US-CLOVIS ONCOLOGY-CLO-2020-000897

PATIENT
  Age: 52 Year
  Sex: Female

DRUGS (3)
  1. RUBRACA [Suspect]
     Active Substance: RUCAPARIB CAMSYLATE
     Dosage: UNK
     Dates: start: 20200419
  2. RUBRACA [Suspect]
     Active Substance: RUCAPARIB CAMSYLATE
     Dosage: 600 MG, BID
     Route: 048
     Dates: start: 20200416
  3. RUBRACA [Suspect]
     Active Substance: RUCAPARIB CAMSYLATE
     Indication: OVARIAN CANCER
     Dosage: 600 MG, BID
     Route: 048
     Dates: start: 20200416, end: 20200617

REACTIONS (24)
  - Renal function test abnormal [Recovering/Resolving]
  - Dizziness [Recovering/Resolving]
  - Muscular weakness [Unknown]
  - Headache [Recovering/Resolving]
  - Hypoaesthesia [Unknown]
  - Fatigue [Not Recovered/Not Resolved]
  - Abdominal pain [Not Recovered/Not Resolved]
  - Sunburn [Unknown]
  - Arthritis [Unknown]
  - Decreased appetite [Unknown]
  - Dysphagia [Recovered/Resolved]
  - Faeces discoloured [Recovered/Resolved]
  - Pain in extremity [Unknown]
  - Throat tightness [Recovered/Resolved]
  - Rash papular [Unknown]
  - Photosensitivity reaction [Unknown]
  - Bone pain [Unknown]
  - Hyperhidrosis [Unknown]
  - Nausea [Recovering/Resolving]
  - Feeling hot [Recovering/Resolving]
  - Abdominal discomfort [Unknown]
  - Taste disorder [Unknown]
  - Aspartate aminotransferase increased [Recovering/Resolving]
  - Alanine aminotransferase increased [Recovering/Resolving]

NARRATIVE: CASE EVENT DATE: 2020
